FAERS Safety Report 15311623 (Version 1)
Quarter: 2018Q3

REPORT INFORMATION
  Report Type: Spontaneous
  Country: US (occurrence: US)
  Receive Date: 20180823
  Receipt Date: 20180823
  Transmission Date: 20181010
  Serious: No
  Sender: FDA-Public Use
  Company Number: US-COLLEGIUM PHARMACEUTICAL, INC.-2018CGM00246

PATIENT
  Age: 49 Year
  Sex: Female
  Weight: 73.92 kg

DRUGS (4)
  1. ALPRAZOLAM. [Concomitant]
     Active Substance: ALPRAZOLAM
  2. GABAPENTIN. [Concomitant]
     Active Substance: GABAPENTIN
  3. XTAMPZA ER [Suspect]
     Active Substance: OXYCODONE
     Dosage: 9 MG, 1X/DAY
     Route: 048
     Dates: start: 20180619, end: 20180627
  4. XTAMPZA ER [Suspect]
     Active Substance: OXYCODONE
     Indication: PAIN
     Dosage: 9 MG, 1X/DAY
     Route: 048
     Dates: start: 20180613, end: 20180617

REACTIONS (3)
  - Product substitution issue [Recovered/Resolved]
  - Inappropriate schedule of drug administration [Recovered/Resolved]
  - Dry mouth [Recovered/Resolved]

NARRATIVE: CASE EVENT DATE: 201806
